FAERS Safety Report 4397336-X (Version None)
Quarter: 2004Q3

REPORT INFORMATION
  Report Type: 
  Country: None (occurrence: None)
  Receive Date: 20040714
  Receipt Date: 20040702
  Transmission Date: 20050211
  Serious: Yes (Other)
  Sender: FDA-Public Use
  Company Number: GB-GLAXOSMITHKLINE-B0338301A

PATIENT
  Age: 68 Year
  Sex: Male
  Weight: 107 kg

DRUGS (1)
  1. SEREVENT [Suspect]
     Indication: ASTHMA
     Dosage: 50MCG TWICE PER DAY
     Route: 055
     Dates: start: 20040528, end: 20040531

REACTIONS (2)
  - DIZZINESS [None]
  - SYNCOPE [None]
